FAERS Safety Report 9412945 (Version 2)
Quarter: 2013Q3

REPORT INFORMATION
  Report Type: Spontaneous
  Country: PL (occurrence: PL)
  Receive Date: 20130722
  Receipt Date: 20130731
  Transmission Date: 20140515
  Serious: Yes (Life-Threatening)
  Sender: FDA-Public Use
  Company Number: PL-TEVA-420210ISR

PATIENT
  Age: 58 Year
  Sex: Male
  Weight: 90 kg

DRUGS (2)
  1. CISPLATIN [Suspect]
     Indication: LUNG NEOPLASM MALIGNANT
     Dosage: 60 MILLIGRAM DAILY;
     Route: 042
     Dates: start: 20121212, end: 20121214
  2. ETOPESID [Concomitant]
     Indication: LUNG NEOPLASM MALIGNANT
     Dosage: 200 MILLIGRAM DAILY;
     Route: 042
     Dates: start: 20121212, end: 20121214

REACTIONS (1)
  - Pancytopenia [Unknown]
